FAERS Safety Report 7887297-0 (Version None)
Quarter: 2011Q4

REPORT INFORMATION
  Report Type: 
  Country: None (occurrence: None)
  Receive Date: 20111102
  Receipt Date: 20110718
  Transmission Date: 20120403
  Serious: No
  Sender: FDA-Public Use
  Company Number: US-AMGEN-USASP2011036279

PATIENT
  Sex: Female

DRUGS (13)
  1. ZOVIA 1/35E-21 [Concomitant]
  2. ALPRAZOLAM [Concomitant]
     Dosage: 2 MG, UNK
  3. SULFADIAZINE [Concomitant]
     Dosage: 500 MG, UNK
  4. LISINOPRIL [Concomitant]
     Dosage: 30 MG, UNK
  5. HYDROCODONE BITARTRATE [Concomitant]
  6. METHOTREXATE [Concomitant]
     Dosage: 2.5 MG, UNK
  7. TRAMADOL HCL [Concomitant]
     Dosage: 50 MG, UNK
  8. CELEXA [Concomitant]
     Dosage: 10 MG, UNK
  9. BUTALBITAL [Concomitant]
  10. LYRICA [Concomitant]
     Dosage: 25 MG, UNK
  11. TIZANIDINE HCL [Concomitant]
     Dosage: 2 MG, UNK
  12. FOLIC ACID [Concomitant]
     Dosage: 5 MG, UNK
  13. ENBREL [Suspect]
     Indication: PRODUCT USED FOR UNKNOWN INDICATION
     Dosage: 50 MG, QWK

REACTIONS (2)
  - INJECTION SITE PAIN [None]
  - INCORRECT DOSE ADMINISTERED BY DEVICE [None]
